FAERS Safety Report 5385005-9 (Version None)
Quarter: 2007Q3

REPORT INFORMATION
  Report Type: 
  Country: None (occurrence: None)
  Receive Date: 20070712
  Receipt Date: 20070706
  Transmission Date: 20080115
  Serious: Yes (Life-Threatening, Hospitalization, Other)
  Sender: FDA-Public Use
  Company Number: PHHO2007US05024

PATIENT
  Age: 81 Year
  Sex: Female

DRUGS (6)
  1. LETROZOLE [Suspect]
     Indication: BREAST CANCER METASTATIC
     Dosage: 2.5 MG, QD
     Route: 048
     Dates: start: 20050829, end: 20070308
  2. VALSARTAN [Concomitant]
  3. METOPROLOL SUCCINATE [Concomitant]
  4. FRUSEMIDE [Concomitant]
  5. RISEDRONIC ACID [Concomitant]
  6. CALCIUM W/VITAMIN D NOS [Concomitant]

REACTIONS (18)
  - ATELECTASIS [None]
  - BLOOD CREATINE PHOSPHOKINASE INCREASED [None]
  - BRAIN NATRIURETIC PEPTIDE INCREASED [None]
  - CARDIAC ENZYMES INCREASED [None]
  - CARDIAC FAILURE CONGESTIVE [None]
  - DIASTOLIC DYSFUNCTION [None]
  - EFFUSION [None]
  - EJECTION FRACTION DECREASED [None]
  - ELECTROCARDIOGRAM ABNORMAL [None]
  - HAEMATEMESIS [None]
  - HYPOKINESIA [None]
  - HYPOTENSION [None]
  - MALLORY-WEISS SYNDROME [None]
  - MYOCARDIAL INFARCTION [None]
  - PULMONARY HYPERTENSION [None]
  - RHABDOMYOLYSIS [None]
  - SINUS TACHYCARDIA [None]
  - TROPONIN INCREASED [None]
